FAERS Safety Report 24411284 (Version 1)
Quarter: 2024Q4

REPORT INFORMATION
  Report Type: Spontaneous
  Country: GB (occurrence: GB)
  Receive Date: 20241008
  Receipt Date: 20241008
  Transmission Date: 20250115
  Serious: Yes (Hospitalization)
  Sender: PFIZER
  Company Number: GB-SANDOZ-SDZ2024GB084278

PATIENT
  Age: 76 Year
  Sex: Female
  Weight: 68 kg

DRUGS (25)
  1. GEMCITABINE HYDROCHLORIDE [Suspect]
     Active Substance: GEMCITABINE HYDROCHLORIDE
     Indication: Ductal adenocarcinoma of pancreas
     Dosage: 1710 MG
     Route: 042
     Dates: start: 20230228
  2. INVESTIGATIONAL PRODUCT [Concomitant]
     Active Substance: INVESTIGATIONAL PRODUCT
     Indication: Ductal adenocarcinoma of pancreas
     Dosage: UNK
     Dates: start: 20230228
  3. PACLITAXEL [Concomitant]
     Active Substance: PACLITAXEL
     Indication: Ductal adenocarcinoma of pancreas
     Dosage: 225 MG
     Route: 042
     Dates: start: 20230228
  4. CREON [Concomitant]
     Active Substance: PANCRELIPASE AMYLASE\PANCRELIPASE LIPASE\PANCRELIPASE PROTEASE
  5. ACETAMINOPHEN [Concomitant]
     Active Substance: ACETAMINOPHEN
  6. TRAMADOL [Concomitant]
     Active Substance: TRAMADOL
  7. MORPHINE SULFATE [Concomitant]
     Active Substance: MORPHINE SULFATE
  8. LANSOPRAZOLE [Concomitant]
     Active Substance: LANSOPRAZOLE
  9. GABAPENTIN [Concomitant]
     Active Substance: GABAPENTIN
  10. FELODIPINE [Concomitant]
     Active Substance: FELODIPINE
  11. DOMPERIDONE [Concomitant]
     Active Substance: DOMPERIDONE
  12. BENZYDAMINE [Concomitant]
     Active Substance: BENZYDAMINE
  13. GELCLAIR [HYALURONATE SODIUM;POVIDONE] [Concomitant]
  14. APIXABAN [Concomitant]
     Active Substance: APIXABAN
  15. CALCIUM CARBONATE [Concomitant]
     Active Substance: CALCIUM CARBONATE
  16. OXETACAINE [Concomitant]
     Active Substance: OXETHAZAINE
  17. UREA [Concomitant]
     Active Substance: UREA
  18. FUROSEMIDE [Concomitant]
     Active Substance: FUROSEMIDE
  19. MEROPENEM [Concomitant]
     Active Substance: MEROPENEM
  20. LIDOCAINE [Concomitant]
     Active Substance: LIDOCAINE
  21. CELECOXIB [Concomitant]
     Active Substance: CELECOXIB
  22. HYDROMOL [SODIUM PIDOLATE] [Concomitant]
  23. AMITRIPTYLINE [Concomitant]
     Active Substance: AMITRIPTYLINE
  24. FOLIC ACID [Concomitant]
     Active Substance: FOLIC ACID
  25. FERROUS FUMARATE [Concomitant]
     Active Substance: FERROUS FUMARATE

REACTIONS (2)
  - Hypoxia [Recovered/Resolved]
  - Pneumonia [Recovered/Resolved]

NARRATIVE: CASE EVENT DATE: 20240416
